FAERS Safety Report 8008370 (Version 5)
Quarter: 2015Q4

REPORT INFORMATION
  Report Type: Other
  Country: FR (occurrence: FR)
  Receive Date: 20110624
  Receipt Date: 20151106
  Transmission Date: 20160305
  Serious: Yes (Other)
  Sender: FDA-Public Use
  Company Number: FR-ACTELION-A-CH2011-50517

PATIENT
  Age: 21 Year
  Sex: Female

DRUGS (3)
  1. VENTAVIS [Concomitant]
     Active Substance: ILOPROST
     Indication: PULMONARY ARTERIAL HYPERTENSION
  2. TRACLEER [Suspect]
     Active Substance: BOSENTAN
     Dosage: 125 MG, BID
     Route: 048
     Dates: start: 200510
  3. TRACLEER [Suspect]
     Active Substance: BOSENTAN
     Indication: PULMONARY ARTERIAL HYPERTENSION
     Dosage: UNK
     Route: 048
     Dates: start: 201010

REACTIONS (12)
  - Pregnancy [Unknown]
  - Systemic lupus erythematosus [Recovering/Resolving]
  - Caesarean section [Unknown]
  - Resuscitation [Recovered/Resolved]
  - Concomitant disease progression [Recovering/Resolving]
  - Pulmonary arterial hypertension [Recovering/Resolving]
  - Condition aggravated [Recovering/Resolving]
  - Circulatory collapse [Recovered/Resolved]
  - Normal newborn [Unknown]
  - Hepatorenal failure [Recovered/Resolved]
  - Cardiac arrest [Recovered/Resolved]
  - Right ventricular failure [Recovered/Resolved]

NARRATIVE: CASE EVENT DATE: 2006
